FAERS Safety Report 7399983-X (Version None)
Quarter: 2011Q2

REPORT INFORMATION
  Report Type: 
  Country: None (occurrence: None)
  Receive Date: 20110407
  Receipt Date: 20110325
  Transmission Date: 20111010
  Serious: Yes (Other)
  Sender: FDA-Public Use
  Company Number: US-JNJFOC-20110308216

PATIENT
  Sex: Female
  Weight: 50.35 kg

DRUGS (16)
  1. FENTANYL-100 [Suspect]
     Indication: COMPLEX REGIONAL PAIN SYNDROME
     Route: 062
  2. DURAGESIC [Suspect]
     Indication: COMPLEX REGIONAL PAIN SYNDROME
     Route: 062
  3. FENTANYL-100 [Suspect]
     Route: 062
  4. DURAGESIC [Suspect]
     Indication: PAIN
     Route: 062
     Dates: start: 20040101, end: 20080101
  5. FENTANYL-100 [Suspect]
     Route: 062
  6. NORCO [Concomitant]
     Indication: PAIN
     Dosage: 10/325
     Route: 048
  7. DURAGESIC [Suspect]
     Route: 062
     Dates: start: 20040101, end: 20080101
  8. FENTANYL-100 [Suspect]
     Indication: PAIN
     Route: 062
  9. POTASSIUM [Concomitant]
     Indication: MEDICAL DIET
     Route: 048
  10. DURAGESIC [Suspect]
     Route: 062
  11. PHENERGAN HCL [Concomitant]
     Indication: NAUSEA
     Route: 048
  12. TRANXENE [Concomitant]
     Indication: MENIERE'S DISEASE
  13. LOPRESSOR [Concomitant]
     Indication: PALPITATIONS
     Route: 048
  14. DURAGESIC [Suspect]
     Route: 062
     Dates: start: 20040101, end: 20080101
  15. PHRENILIN [Concomitant]
     Indication: CROHN'S DISEASE
     Route: 048
  16. IMURAN [Concomitant]
     Indication: CROHN'S DISEASE
     Route: 048

REACTIONS (14)
  - APPLICATION SITE VESICLES [None]
  - INAPPROPRIATE SCHEDULE OF DRUG ADMINISTRATION [None]
  - WEIGHT DECREASED [None]
  - SERUM FERRITIN DECREASED [None]
  - HEADACHE [None]
  - THERAPEUTIC RESPONSE DECREASED [None]
  - BURNING SENSATION [None]
  - HYPERHIDROSIS [None]
  - THYROID DISORDER [None]
  - APPLICATION SITE PAIN [None]
  - PRODUCT ADHESION ISSUE [None]
  - DRUG PRESCRIBING ERROR [None]
  - VITAMIN D DEFICIENCY [None]
  - PAIN [None]
